FAERS Safety Report 8779407 (Version 1)
Quarter: 2012Q4

REPORT INFORMATION
  Report Type: 
  Country: RO (occurrence: RO)
  Receive Date: 20120912
  Receipt Date: 20120912
  Transmission Date: 20130627
  Serious: Yes (Death, Hospitalization)
  Sender: FDA-Public Use
  Company Number: RO-PFIZER INC-2012221027

PATIENT
  Age: 63 Year
  Sex: Female

DRUGS (2)
  1. TIGECYCLINE [Suspect]
     Indication: ABDOMINAL INFECTION
     Dosage: 50 mg, 2x/day
     Route: 042
     Dates: start: 20120729, end: 20120816
  2. VANCOMYCIN [Concomitant]

REACTIONS (1)
  - Cardiac failure [Fatal]
